FAERS Safety Report 4771038-X (Version None)
Quarter: 2005Q3

REPORT INFORMATION
  Report Type: 
  Country: None (occurrence: None)
  Receive Date: 20050914
  Receipt Date: 20050830
  Transmission Date: 20060218
  Serious: Yes (Death, Hospitalization)
  Sender: FDA-Public Use
  Company Number: EWC050945601

PATIENT
  Age: 24 Year
  Sex: Female

DRUGS (4)
  1. XIGRIS [Suspect]
     Indication: SEPSIS
     Dosage: 24 UG/KG/HR
     Dates: start: 20050824, end: 20050827
  2. NORADRENALINE [Concomitant]
  3. DOPAMINE [Concomitant]
  4. ANTIBIOTICS [Concomitant]

REACTIONS (6)
  - BRAIN DEATH [None]
  - CONVULSION [None]
  - HAEMATURIA [None]
  - HAEMORRHAGE INTRACRANIAL [None]
  - LOSS OF CONSCIOUSNESS [None]
  - UPPER GASTROINTESTINAL HAEMORRHAGE [None]
